FAERS Safety Report 24805742 (Version 2)
Quarter: 2025Q1

REPORT INFORMATION
  Report Type: Spontaneous
  Country: FR (occurrence: FR)
  Receive Date: 20250103
  Receipt Date: 20250117
  Transmission Date: 20250408
  Serious: Yes (Other)
  Sender: ALEXION PHARMACEUTICALS
  Company Number: FR-SA-2024SA382929

PATIENT
  Age: 3 Month
  Weight: 5.54 kg

DRUGS (1)
  1. NIRSEVIMAB [Suspect]
     Active Substance: NIRSEVIMAB
     Indication: Respiratory syncytial virus immunisation

REACTIONS (1)
  - Respiratory syncytial virus bronchiolitis [Recovered/Resolved]
